FAERS Safety Report 10812098 (Version 1)
Quarter: 2015Q1

REPORT INFORMATION
  Report Type: Spontaneous
  Country: GB (occurrence: GB)
  Receive Date: 20150218
  Receipt Date: 20150218
  Transmission Date: 20150721
  Serious: Yes (Other)
  Sender: FDA-Public Use
  Company Number: PHHY2015GB015990

PATIENT
  Age: 53 Year
  Sex: Male
  Weight: 147 kg

DRUGS (2)
  1. CANDESARTAN CILEXETIL. [Suspect]
     Active Substance: CANDESARTAN CILEXETIL
     Indication: HYPERTENSION
     Dosage: 16 MG, UNK (FIRST THING IN THE MORNING)
     Route: 048
     Dates: start: 20150102
  2. TEA, GREEN [Interacting]
     Active Substance: GREEN TEA LEAF
     Indication: PRODUCT USED FOR UNKNOWN INDICATION
     Dosage: 315 MG, UNK (IRST THING IN THE MORNING)
     Route: 048
     Dates: end: 20150117

REACTIONS (2)
  - Herbal interaction [Unknown]
  - Blood pressure diastolic increased [Recovered/Resolved]

NARRATIVE: CASE EVENT DATE: 20150102
